FAERS Safety Report 18849104 (Version 3)
Quarter: 2021Q1

REPORT INFORMATION
  Report Type: Report from Study
  Country: US (occurrence: US)
  Receive Date: 20210204
  Receipt Date: 20210304
  Transmission Date: 20210419
  Serious: Yes (Hospitalization)
  Sender: FDA-Public Use
  Company Number: US-JNJFOC-20210138537

PATIENT
  Age: 57 Year
  Sex: Female
  Weight: 49.94 kg

DRUGS (5)
  1. OPSUMIT [Suspect]
     Active Substance: MACITENTAN
     Indication: PULMONARY ARTERIAL HYPERTENSION
     Route: 048
  2. TREPROSTINIL. [Concomitant]
     Active Substance: TREPROSTINIL
  3. ELIQUIS [Concomitant]
     Active Substance: APIXABAN
  4. REVATIO [Concomitant]
     Active Substance: SILDENAFIL CITRATE
  5. XARELTO [Concomitant]
     Active Substance: RIVAROXABAN

REACTIONS (5)
  - Dyspnoea [Unknown]
  - Vaginal haemorrhage [Unknown]
  - Anaemia [Unknown]
  - Haemorrhage [Unknown]
  - Fluid retention [Unknown]

NARRATIVE: CASE EVENT DATE: 20210119
